FAERS Safety Report 13531646 (Version 1)
Quarter: 2017Q2

REPORT INFORMATION
  Report Type: Report from Study
  Country: BR (occurrence: BR)
  Receive Date: 20170510
  Receipt Date: 20170510
  Transmission Date: 20170830
  Serious: Yes (Other)
  Sender: FDA-Public Use
  Company Number: PHHY2017BR067823

PATIENT
  Age: 32 Year
  Sex: Female
  Weight: 58 kg

DRUGS (1)
  1. GILENYA [Suspect]
     Active Substance: FINGOLIMOD HYDROCHLORIDE
     Indication: MULTIPLE SCLEROSIS
     Dosage: 0.5 MG, QD
     Route: 048
     Dates: start: 201310

REACTIONS (12)
  - Weight decreased [Unknown]
  - Body height decreased [Unknown]
  - Hernia [Unknown]
  - Influenza [Recovering/Resolving]
  - Sneezing [Unknown]
  - Vision blurred [Unknown]
  - Alopecia [Unknown]
  - Dizziness [Unknown]
  - Malaise [Unknown]
  - Pain [Unknown]
  - Multiple sclerosis relapse [Unknown]
  - Rhinorrhoea [Unknown]

NARRATIVE: CASE EVENT DATE: 201703
